FAERS Safety Report 5863059-0 (Version None)
Quarter: 2008Q3

REPORT INFORMATION
  Report Type: 
  Country: None (occurrence: None)
  Receive Date: 20080818
  Receipt Date: 20080428
  Transmission Date: 20090109
  Serious: No
  Sender: FDA-Public Use
  Company Number: WAES 0804USA06006

PATIENT
  Age: 41 Year
  Sex: Female

DRUGS (8)
  1. JANUVIA [Suspect]
     Indication: TYPE 2 DIABETES MELLITUS
     Dosage: PO
     Route: 048
     Dates: start: 20071101
  2. ALTACE [Concomitant]
  3. CYMBALTA [Concomitant]
  4. GLUCOVANCE [Concomitant]
  5. PREMARIN [Concomitant]
  6. PROTONIX [Concomitant]
  7. ZETIA [Concomitant]
  8. ATENOLOL [Concomitant]

REACTIONS (5)
  - COUGH [None]
  - EYE PRURITUS [None]
  - NASAL CONGESTION [None]
  - RHINORRHOEA [None]
  - THROAT IRRITATION [None]
